FAERS Safety Report 11513987 (Version 1)
Quarter: 2015Q3

REPORT INFORMATION
  Report Type: Spontaneous
  Country: JP (occurrence: JP)
  Receive Date: 20150916
  Receipt Date: 20150916
  Transmission Date: 20151125
  Serious: Yes (Death, Other)
  Sender: FDA-Public Use
  Company Number: JP-ELI_LILLY_AND_COMPANY-JP201508007971

PATIENT
  Age: 75 Year
  Sex: Male

DRUGS (20)
  1. ALIMTA [Suspect]
     Active Substance: PEMETREXED DISODIUM
     Indication: LUNG NEOPLASM MALIGNANT
     Dosage: 640 MG, UNK
     Route: 042
     Dates: start: 20150814, end: 20150814
  2. SIMPLE SYRUP [Concomitant]
     Dosage: UNK, QID
     Route: 048
     Dates: start: 20150811, end: 20150822
  3. ZOPICLONE [Concomitant]
     Active Substance: ZOPICLONE
     Dosage: 7.5 MG, QD
     Route: 048
     Dates: start: 20150224, end: 20150822
  4. AMLODIPINE                         /00972402/ [Concomitant]
     Active Substance: AMLODIPINE BESYLATE
     Dosage: 5 MG, EACH MORNING
     Route: 048
     Dates: end: 20150821
  5. BEZAFIBRATE [Concomitant]
     Active Substance: BEZAFIBRATE
     Dosage: 200 MG, BID
     Route: 048
     Dates: end: 20150821
  6. SPIRIVA [Concomitant]
     Active Substance: TIOTROPIUM BROMIDE MONOHYDRATE
     Dosage: UNK
     Route: 055
     Dates: end: 20150820
  7. MAGMITT [Concomitant]
     Active Substance: MAGNESIUM OXIDE
     Dosage: 660 MG, TID
     Route: 048
     Dates: end: 20150820
  8. FLUNITRAZEPAM [Concomitant]
     Active Substance: FLUNITRAZEPAM
     Dosage: 1 MG, EACH EVENING
     Route: 048
     Dates: end: 20150822
  9. RABEPRAZOLE                        /01417202/ [Concomitant]
     Dosage: 10 MG, EACH MORNING
     Route: 048
     Dates: end: 20150821
  10. LOXOPROFEN EMEC [Concomitant]
     Active Substance: LOXOPROFEN
     Dosage: UNK
     Route: 048
     Dates: start: 201501, end: 20150820
  11. APRICOT KERNEL WATER [Concomitant]
     Active Substance: HERBALS
     Dosage: UNK
     Route: 048
     Dates: start: 20150811, end: 20150822
  12. PAXIL [Concomitant]
     Active Substance: PAROXETINE HYDROCHLORIDE
     Dosage: 10 MG, EACH EVENING
     Route: 048
     Dates: end: 20150830
  13. MECOBALAMIN [Concomitant]
     Active Substance: METHYLCOBALAMIN
     Dosage: 500 UG, BID
     Route: 048
     Dates: end: 20150821
  14. PANVITAN                           /05664401/ [Concomitant]
     Dosage: UNK, EACH MORNING
     Route: 048
     Dates: start: 201501, end: 20150823
  15. LYRICA [Concomitant]
     Active Substance: PREGABALIN
     Dosage: 75 MG, EACH EVENING
     Route: 048
     Dates: start: 201501, end: 20150820
  16. RELVAR [Concomitant]
     Dosage: UNK
     Route: 055
     Dates: start: 20150629, end: 20150831
  17. ALLOPURINOL. [Concomitant]
     Active Substance: ALLOPURINOL
     Dosage: 100 MG, EACH MORNING
     Route: 048
     Dates: end: 20150821
  18. MEDICON                            /00048102/ [Concomitant]
     Active Substance: DEXTROMETHORPHAN HYDROBROMIDE
     Dosage: 30 MG, TID
     Route: 048
     Dates: start: 201412, end: 20150823
  19. LOSARTAN                           /01121602/ [Concomitant]
     Active Substance: LOSARTAN
     Dosage: 25 MG, EACH MORNING
     Route: 048
     Dates: end: 20150821
  20. MYORELARK [Concomitant]
     Dosage: 50 MG, UNK
     Route: 048
     Dates: end: 20150821

REACTIONS (6)
  - Febrile neutropenia [Fatal]
  - Platelet count decreased [Fatal]
  - Pneumonia [Unknown]
  - Disseminated intravascular coagulation [Unknown]
  - Multi-organ failure [Fatal]
  - Hypophagia [Unknown]

NARRATIVE: CASE EVENT DATE: 2015
